FAERS Safety Report 7376918-7 (Version None)
Quarter: 2011Q1

REPORT INFORMATION
  Report Type: 
  Country: None (occurrence: None)
  Receive Date: 20110328
  Receipt Date: 20110314
  Transmission Date: 20110831
  Serious: Yes (Other)
  Sender: FDA-Public Use
  Company Number: US-BAYER-2011-022876

PATIENT
  Sex: Male

DRUGS (1)
  1. AVELOX [Suspect]
     Route: 048

REACTIONS (4)
  - BLOOD PRESSURE DECREASED [None]
  - DYSPNOEA [None]
  - LOSS OF CONSCIOUSNESS [None]
  - ANAPHYLACTIC REACTION [None]
